FAERS Safety Report 17347677 (Version 4)
Quarter: 2020Q4

REPORT INFORMATION
  Report Type: Spontaneous
  Country: US (occurrence: US)
  Receive Date: 20200130
  Receipt Date: 20201012
  Transmission Date: 20210113
  Serious: Yes (Death, Other)
  Sender: FDA-Public Use
  Company Number: US-GLAXOSMITHKLINE-US2020GSK016310

PATIENT
  Age: 3 Year
  Sex: Male

DRUGS (4)
  1. PRILOSEC [Suspect]
     Active Substance: OMEPRAZOLE MAGNESIUM
     Indication: DYSPEPSIA
     Dosage: UNK
     Route: 065
     Dates: start: 2009, end: 2015
  2. PREVACID 24 HR [Suspect]
     Active Substance: LANSOPRAZOLE
     Indication: PRODUCT USED FOR UNKNOWN INDICATION
     Dosage: UNK
     Route: 048
  3. PREVACID [Suspect]
     Active Substance: LANSOPRAZOLE
     Indication: DYSPEPSIA
     Dosage: UNK
     Route: 065
     Dates: start: 2009, end: 2015
  4. PRILOSEC OTC [Suspect]
     Active Substance: OMEPRAZOLE MAGNESIUM
     Indication: PRODUCT USED FOR UNKNOWN INDICATION
     Dosage: UNK
     Route: 065

REACTIONS (13)
  - End stage renal disease [Recovered/Resolved]
  - Chronic kidney disease [Unknown]
  - Haemodialysis [Recovered/Resolved]
  - Cystic fibrosis [Recovered/Resolved]
  - Infective pulmonary exacerbation of cystic fibrosis [Unknown]
  - Cystic fibrosis related diabetes [Unknown]
  - Dialysis [Unknown]
  - Acute kidney injury [Recovered/Resolved]
  - Renal transplant [Unknown]
  - Gastrostomy [Recovered/Resolved]
  - Death [Fatal]
  - Nephropathy [Unknown]
  - Oesophagogastric fundoplasty [Recovered/Resolved]

NARRATIVE: CASE EVENT DATE: 20050202
